FAERS Safety Report 5067630-8 (Version None)
Quarter: 2006Q3

REPORT INFORMATION
  Report Type: 
  Country: None (occurrence: None)
  Receive Date: 20060712
  Receipt Date: 20060609
  Transmission Date: 20061208
  Serious: No
  Sender: FDA-Public Use
  Company Number: A03200603846

PATIENT
  Sex: Male

DRUGS (1)
  1. UROXATRAL [Suspect]
     Dosage: 10 MG TABLET PR, ORAL
     Route: 048
     Dates: start: 20060608

REACTIONS (2)
  - GENITAL PAIN MALE [None]
  - NOCTURIA [None]
